FAERS Safety Report 6197796-8 (Version None)
Quarter: 2009Q2

REPORT INFORMATION
  Report Type: 
  Country: None (occurrence: None)
  Receive Date: 20090521
  Receipt Date: 20090512
  Transmission Date: 20091009
  Serious: Yes (Other)
  Sender: FDA-Public Use
  Company Number: US-PFIZER INC-2009192726

PATIENT
  Sex: Male
  Weight: 79.5 kg

DRUGS (21)
  1. TIKOSYN [Suspect]
     Indication: ATRIAL FIBRILLATION
     Dosage: 250 UG, 2X/DAY
     Route: 048
     Dates: start: 20090324
  2. AMLODIPINE [Concomitant]
     Dosage: UNK
  3. ACETYLSALICYLIC ACID [Concomitant]
     Dosage: UNK
  4. DIGOXIN [Concomitant]
     Dosage: UNK
  5. LASIX [Concomitant]
     Dosage: UNK
  6. INSULIN [Concomitant]
     Dosage: UNK
  7. LEPIRUDIN [Concomitant]
     Dosage: UNK
  8. LORAZEPAM [Concomitant]
     Dosage: 2 MG, 1X/DAY
  9. LOPRESSOR [Concomitant]
     Dosage: 50 MG, 2X/DAY
  10. NYSTATIN [Concomitant]
     Dosage: UNK
     Route: 061
  11. PROTONIX [Concomitant]
     Dosage: 40 MG, 2X/DAY
  12. PREDNISONE [Concomitant]
     Dosage: UNK
  13. SENOKOT [Concomitant]
     Dosage: UNK
  14. ZOLOFT [Concomitant]
     Dosage: 25 MG, 1X/DAY
  15. WARFARIN [Concomitant]
     Dosage: 1 MG, 1X/DAY
  16. ACETAMINOPHEN [Concomitant]
     Dosage: UNK
  17. DUONEB [Concomitant]
     Dosage: UNK
  18. FENTANYL [Concomitant]
     Dosage: UNK
  19. CEPACOL ANESTHETIC [Concomitant]
     Dosage: UNK
  20. NITROGLYCERIN [Concomitant]
     Dosage: UNK
     Route: 060
  21. TEMAZEPAM [Concomitant]
     Dosage: UNK

REACTIONS (6)
  - ELECTROCARDIOGRAM QT PROLONGED [None]
  - ELECTROCARDIOGRAM REPOLARISATION ABNORMALITY [None]
  - LEFT VENTRICULAR HYPERTROPHY [None]
  - SINUS TACHYCARDIA [None]
  - SUPRAVENTRICULAR EXTRASYSTOLES [None]
  - VENTRICULAR EXTRASYSTOLES [None]
